FAERS Safety Report 11927883 (Version 3)
Quarter: 2017Q1

REPORT INFORMATION
  Report Type: Spontaneous
  Country: GB (occurrence: GB)
  Receive Date: 20160119
  Receipt Date: 20170117
  Transmission Date: 20170428
  Serious: Yes (Life-Threatening, Hospitalization)
  Sender: FDA-Public Use
  Company Number: GB-PFIZER INC-2016017219

PATIENT
  Age: 72 Year
  Sex: Male

DRUGS (17)
  1. DOCETAXEL. [Suspect]
     Active Substance: DOCETAXEL
     Indication: LUNG ADENOCARCINOMA
     Dosage: 75 MG/M2, CYCLIC (INTENDED FOR 20 DAY COURSE)
     Dates: start: 20151201, end: 20151209
  2. VENTOLIN [Concomitant]
     Active Substance: ALBUTEROL SULFATE
     Dosage: 200MICROGRAMS/DOSE ACCUHALER. ONE DOSE UP TO FOUR TIMES A DAY - ALSO USES A EASYHALER
     Route: 055
  3. SIMPLE LINCTUS [Concomitant]
     Active Substance: AMARANTH\CHLOROFORM\CITRIC ACID MONOHYDRATE\PIMPINELLA ANISUM WHOLE
     Dosage: 5 ML, 3X/DAY SUGAR FREE
     Dates: start: 20151027
  4. LANSOPRAZOLE. [Concomitant]
     Active Substance: LANSOPRAZOLE
     Dosage: 30 MG, 1X/DAY
  5. DOXYCYCLINE. [Concomitant]
     Active Substance: DOXYCYCLINE
     Dosage: 100 MG, TWO TO BE TAKEN ON THE FIRST DAY THEN ONE TO BE TAKEN EACH DAY
     Dates: start: 20151012
  6. OXYNORM [Concomitant]
     Active Substance: OXYCODONE HYDROCHLORIDE
     Indication: PAIN
     Dosage: 5 MG, AS NEEDED
     Dates: start: 20141121
  7. SALINE /00075401/ [Concomitant]
     Active Substance: SODIUM CHLORIDE
     Dosage: 2.5 MG, AS NECESSARY
  8. ACLIDINIUM BROMIDE [Concomitant]
     Active Substance: ACLIDINIUM BROMIDE
     Dosage: 1 DF, 2X/DAY 375 MICROGRAMS/DOSE
     Route: 055
  9. FOSTAIR [Concomitant]
     Active Substance: BECLOMETHASONE\FORMOTEROL
     Dosage: PUFFS. 100MICROGRAMS/DOSE/6MICROGRAMS/DOSE
     Route: 055
  10. DEXAMETHASONE. [Concomitant]
     Active Substance: DEXAMETHASONE
     Indication: PROPHYLAXIS
     Dosage: 8 MG, 2X/DAY
     Dates: start: 20151221, end: 20151223
  11. SENNA [Concomitant]
     Active Substance: SENNA LEAF\SENNOSIDES\SENNOSIDES A AND B
     Indication: CONSTIPATION
     Dosage: 7.5 MG, AS NEEDED 1 OR 2 AT NIGHT
  12. SODIUM CHLORIDE. [Concomitant]
     Active Substance: SODIUM CHLORIDE
     Dosage: 2.5 ML, AS NEEDED
  13. DEPO MEDRONE WITH LIDOCAINE [Concomitant]
     Dosage: 2 ML, INJECTION INTO RIGHT KNEE
     Dates: start: 20151012, end: 20151012
  14. PARACETAMOL [Concomitant]
     Active Substance: ACETAMINOPHEN
     Dosage: 500 MG, AS NEEDED 1-2, 4 TIMES A DAY
  15. OXYCONTIN [Concomitant]
     Active Substance: OXYCODONE HYDROCHLORIDE
     Dosage: 10 MG, 2X/DAY
     Dates: start: 20140620
  16. VARGATEF [Suspect]
     Active Substance: NINTEDANIB
     Indication: LUNG ADENOCARCINOMA
     Dosage: 200 MG, 2X/DAY INTENDED FOR 20 DAY COURSE
     Route: 048
     Dates: start: 20151201, end: 20151209
  17. SIMVASTATIN. [Concomitant]
     Active Substance: SIMVASTATIN
     Dosage: 40 MG, 1X/DAY AT NIGHT

REACTIONS (9)
  - Neutrophil count decreased [Not Recovered/Not Resolved]
  - Hiccups [Unknown]
  - Neutropenic sepsis [Recovered/Resolved]
  - Diarrhoea [Recovered/Resolved]
  - Mouth ulceration [Recovering/Resolving]
  - Malaise [Unknown]
  - Lung consolidation [Unknown]
  - Pleural effusion [Unknown]
  - Lethargy [Unknown]

NARRATIVE: CASE EVENT DATE: 20151209
